FAERS Safety Report 24385594 (Version 2)
Quarter: 2024Q4

REPORT INFORMATION
  Report Type: Spontaneous
  Country: GB (occurrence: GB)
  Receive Date: 20241001
  Receipt Date: 20241018
  Transmission Date: 20250115
  Serious: Yes (Life-Threatening, Hospitalization)
  Sender: TEVA
  Company Number: GB-TEVA-VS-3247707

PATIENT
  Age: 35 Year
  Sex: Male

DRUGS (1)
  1. WARFARIN [Suspect]
     Active Substance: WARFARIN
     Indication: Antiphospholipid syndrome
     Route: 065

REACTIONS (2)
  - Withdrawal syndrome [Recovering/Resolving]
  - Antiphospholipid syndrome [Recovering/Resolving]
